FAERS Safety Report 9154225 (Version 1)
Quarter: 2013Q1

REPORT INFORMATION
  Report Type: Spontaneous
  Country: US (occurrence: None)
  Receive Date: 20130308
  Receipt Date: 20130308
  Transmission Date: 20140127
  Serious: Yes (Other)
  Sender: FDA-Public Use
  Company Number: None

PATIENT
  Age: 49 Year
  Sex: Female

DRUGS (1)
  1. HUMIRA 40 MG PEN ABBVIE HUMIRA [Suspect]
     Indication: PSORIASIS
     Dosage: 40 MG Q 2 WEEKS  SQ
     Route: 058
     Dates: start: 20121101, end: 20130115

REACTIONS (1)
  - Multiple sclerosis [None]
